FAERS Safety Report 5375197-X (Version None)
Quarter: 2007Q2

REPORT INFORMATION
  Report Type: 
  Country: None (occurrence: None)
  Receive Date: 20070629
  Receipt Date: 20070614
  Transmission Date: 20071010
  Serious: Yes (Hospitalization)
  Sender: FDA-Public Use
  Company Number: DK-ASTRAZENECA-2006SE06046

PATIENT
  Age: 27258 Day
  Sex: Female

DRUGS (16)
  1. SYMBICORT FORTE TURBUHALER [Suspect]
     Indication: CHRONIC OBSTRUCTIVE PULMONARY DISEASE
     Dosage: 320/9 UG/IH, ONE INHALATION TWICE DAILY
     Route: 055
     Dates: start: 20061027
  2. AMLODIPINE [Concomitant]
     Indication: HYPERTENSION
     Route: 048
  3. MAGNYL [Concomitant]
     Indication: CARDIOVASCULAR EVENT PROPHYLAXIS
     Route: 048
  4. CALCICHEW [Concomitant]
     Indication: OSTEOPOROSIS
     Route: 048
  5. NEXIUM [Concomitant]
     Indication: GASTROOESOPHAGEAL REFLUX DISEASE
     Route: 048
  6. CORODIL [Concomitant]
     Indication: HYPERTENSION
     Route: 048
  7. ALPROX [Concomitant]
     Indication: ANXIETY
     Route: 048
  8. GLUCOSAMIN [Concomitant]
     Indication: ARTHRALGIA
     Route: 048
  9. CENTYL MITE [Concomitant]
     Indication: HYPERTENSION
     Route: 048
  10. BERODUAL [Concomitant]
     Indication: CHRONIC OBSTRUCTIVE PULMONARY DISEASE
     Route: 055
     Dates: end: 20061013
  11. KARBAMAZEPIN [Concomitant]
     Indication: FACIAL PAIN
     Route: 048
  12. ELTROXIN [Concomitant]
     Indication: HYPERTHYROIDISM
     Route: 048
  13. FOSAMAX [Concomitant]
     Indication: OSTEOPOROSIS
     Route: 048
  14. SYMBICORT [Concomitant]
     Indication: CHRONIC OBSTRUCTIVE PULMONARY DISEASE
     Route: 055
     Dates: end: 20061013
  15. PRIMCILLIN [Concomitant]
     Indication: PNEUMONIA
     Route: 048
     Dates: start: 20061106, end: 20061108
  16. PRIMCILLIN [Concomitant]
     Route: 048
     Dates: start: 20061109

REACTIONS (1)
  - PNEUMONIA [None]
